FAERS Safety Report 4326805-3 (Version None)
Quarter: 2004Q1

REPORT INFORMATION
  Report Type: 
  Country: None (occurrence: None)
  Receive Date: 20040322
  Receipt Date: 20040205
  Transmission Date: 20041129
  Serious: Yes (Hospitalization)
  Sender: FDA-Public Use
  Company Number: PHEH2004US01652

PATIENT
  Age: 45 Year
  Sex: Female

DRUGS (8)
  1. ZOMETA [Suspect]
     Indication: HYPERCALCAEMIA OF MALIGNANCY
     Dosage: 4 MG, QMO, ONCE/SINGLE, INTRAVENOUS
     Route: 042
     Dates: start: 20031023
  2. PRAMIPEXOLE (PRAMIPEXOLE) [Concomitant]
  3. CARBIDOPA [Concomitant]
  4. ENTACAPONE [Concomitant]
  5. LEVODOPA [Concomitant]
  6. LANSOPRAZOLE [Concomitant]
  7. ERYTHROPOIETIN (ERYTHROPOIETIN) [Concomitant]
  8. MEGACE [Concomitant]

REACTIONS (7)
  - BONE PAIN [None]
  - CHILLS [None]
  - DEHYDRATION [None]
  - HAEMATOCRIT DECREASED [None]
  - HAEMOGLOBIN DECREASED [None]
  - NAUSEA [None]
  - PYREXIA [None]
